FAERS Safety Report 15685890 (Version 2)
Quarter: 2019Q2

REPORT INFORMATION
  Report Type: Spontaneous
  Country: US (occurrence: US)
  Receive Date: 20181204
  Receipt Date: 20190410
  Transmission Date: 20190711
  Serious: Yes (Other)
  Sender: FDA-Public Use
  Company Number: US-SA-2018SA326073

PATIENT
  Age: 56 Year
  Sex: Female
  Weight: 74.8 kg

DRUGS (10)
  1. HYDROXYCHLOROQUINE [Concomitant]
     Active Substance: HYDROXYCHLOROQUINE
     Dosage: UNK UNK, UNK
     Route: 065
     Dates: start: 20130723
  2. TIZANIDINE. [Concomitant]
     Active Substance: TIZANIDINE
     Dosage: UNK UNK, UNK
     Route: 065
     Dates: start: 20140422
  3. NEOSAR [Concomitant]
     Active Substance: CYCLOPHOSPHAMIDE
     Dosage: UNK UNK, UNK
     Route: 065
  4. TAXOTERE [Suspect]
     Active Substance: DOCETAXEL
     Dosage: 148 MG, Q3W
     Route: 042
     Dates: start: 20151103, end: 20151103
  5. ASPIRIN [ACETYLSALICYLIC ACID] [Concomitant]
     Active Substance: ASPIRIN
     Dosage: UNK UNK, UNK
     Route: 065
     Dates: start: 20140923
  6. METOPROLOL. [Concomitant]
     Active Substance: METOPROLOL
     Dosage: UNK UNK, UNK
     Route: 065
     Dates: start: 20140422
  7. TAXOTERE [Suspect]
     Active Substance: DOCETAXEL
     Indication: BREAST CANCER FEMALE
     Dosage: 148 MG, Q3W
     Route: 042
     Dates: start: 20150831, end: 20150831
  8. CEVIMELINE. [Concomitant]
     Active Substance: CEVIMELINE
     Dosage: UNK UNK, UNK
     Route: 065
     Dates: start: 20130617
  9. NABUMETONE. [Concomitant]
     Active Substance: NABUMETONE
     Dosage: UNK UNK, UNK
     Route: 065
     Dates: start: 20131015
  10. PREDNISONE. [Concomitant]
     Active Substance: PREDNISONE
     Dosage: UNK UNK, UNK
     Route: 065
     Dates: start: 20130821

REACTIONS (3)
  - Alopecia [Recovering/Resolving]
  - Emotional distress [Unknown]
  - Anxiety [Unknown]

NARRATIVE: CASE EVENT DATE: 201605
